FAERS Safety Report 9887481 (Version 1)
Quarter: 2014Q1

REPORT INFORMATION
  Report Type: Spontaneous
  Country: FR (occurrence: FR)
  Receive Date: 20140211
  Receipt Date: 20140211
  Transmission Date: 20141002
  Serious: Yes (Hospitalization)
  Sender: FDA-Public Use
  Company Number: FR-ROCHE-1344953

PATIENT
  Age: 25 Year
  Sex: Male

DRUGS (6)
  1. ROCEPHINE [Suspect]
     Indication: INFECTION
     Route: 042
     Dates: start: 20131025, end: 20131103
  2. ROVAMYCINE [Suspect]
     Indication: INFECTION
     Dosage: 3 MILLIONS IU
     Route: 048
     Dates: start: 20131025, end: 20131108
  3. CLARADOL CAFEINE [Suspect]
     Indication: POST LUMBAR PUNCTURE SYNDROME
     Route: 048
     Dates: start: 201310, end: 20131104
  4. OFLOCET (FRANCE) [Suspect]
     Indication: INFECTION
     Route: 048
     Dates: start: 20131021, end: 20131025
  5. SEROPLEX [Concomitant]
     Route: 048
  6. LYSANXIA [Concomitant]
     Route: 048

REACTIONS (1)
  - Hepatocellular injury [Unknown]
